FAERS Safety Report 15983883 (Version 1)
Quarter: 2019Q1

REPORT INFORMATION
  Report Type: Spontaneous
  Country: US (occurrence: US)
  Receive Date: 20190219
  Receipt Date: 20190219
  Transmission Date: 20190418
  Serious: No
  Sender: FDA-Public Use
  Company Number: None

PATIENT
  Age: 7 Year
  Sex: Male
  Weight: 29.25 kg

DRUGS (1)
  1. GENERIC TAMIFLU (OSELTAMIVIR 6MG/ML SUSPENSION 60ML [Suspect]
     Active Substance: OSELTAMIVIR
     Indication: INFLUENZA
     Dosage: ?          QUANTITY:5 10ML;?
     Route: 048

REACTIONS (1)
  - Sleep terror [None]

NARRATIVE: CASE EVENT DATE: 20190219
